FAERS Safety Report 14920236 (Version 1)
Quarter: 2018Q2

REPORT INFORMATION
  Report Type: Spontaneous
  Country: US (occurrence: US)
  Receive Date: 20180502
  Receipt Date: 20180502
  Transmission Date: 20180711
  Serious: Yes (Death, Other)
  Sender: FDA-Public Use
  Company Number: None

PATIENT
  Age: 77 Year
  Sex: Male
  Weight: 72.57 kg

DRUGS (7)
  1. ZOSYN [Concomitant]
     Active Substance: PIPERACILLIN SODIUM\TAZOBACTAM SODIUM
  2. HEPARIN [Concomitant]
     Active Substance: HEPARIN SODIUM
  3. PRINIVIL [Concomitant]
     Active Substance: LISINOPRIL
  4. NORVASC [Concomitant]
     Active Substance: AMLODIPINE BESYLATE
  5. XANAX [Concomitant]
     Active Substance: ALPRAZOLAM
  6. FINISTRIDE [Concomitant]
  7. NUPLAZID [Suspect]
     Active Substance: PIMAVANSERIN TARTRATE
     Indication: PARKINSON^S DISEASE
     Route: 048
     Dates: start: 20170204, end: 20170214

REACTIONS (4)
  - Condition aggravated [None]
  - Gait inability [None]
  - Impaired self-care [None]
  - Speech disorder [None]

NARRATIVE: CASE EVENT DATE: 20170204
